FAERS Safety Report 9957975 (Version 2)
Quarter: 2014Q1

REPORT INFORMATION
  Report Type: Report from Study
  Country: US (occurrence: US)
  Receive Date: 20140304
  Receipt Date: 20140304
  Transmission Date: 20141002
  Serious: Yes (Hospitalization)
  Sender: FDA-Public Use
  Company Number: US-ABBVIE-13P-163-1064006-00

PATIENT
  Age: 46 Year
  Sex: Female

DRUGS (7)
  1. HUMIRA [Suspect]
     Indication: CROHN^S DISEASE
     Dosage: LOADING DOSE
     Dates: start: 20130309
  2. HUMIRA [Suspect]
     Dates: start: 201303
  3. LIALDA [Concomitant]
     Indication: PRODUCT USED FOR UNKNOWN INDICATION
     Dosage: 2 PILLS A DAY
  4. PREDNISONE [Concomitant]
     Dosage: X 4 MONTHS
     Dates: end: 20130312
  5. ESTRADIOL [Concomitant]
     Indication: HYSTERECTOMY
     Dosage: FOLLOWING HYSTERCTY
  6. HYOSCYAMINE [Concomitant]
     Indication: ABDOMINAL PAIN UPPER
  7. NEXIUM [Concomitant]
     Indication: PRODUCT USED FOR UNKNOWN INDICATION

REACTIONS (1)
  - Abdominal pain upper [Recovered/Resolved]
